FAERS Safety Report 5521078-8 (Version None)
Quarter: 2007Q4

REPORT INFORMATION
  Report Type: 
  Country: None (occurrence: None)
  Receive Date: 20071115
  Receipt Date: 20071105
  Transmission Date: 20080405
  Serious: Yes (Other)
  Sender: FDA-Public Use
  Company Number: 236113K07USA

PATIENT
  Age: 50 Year
  Sex: Female
  Weight: 66.6788 kg

DRUGS (7)
  1. REBIF [Suspect]
     Indication: MULTIPLE SCLEROSIS
     Dosage: 44 MCG, 3 IN 1 WEEKS, SUBCUTANEOUS
     Route: 058
     Dates: start: 20060123
  2. LYRICA [Concomitant]
  3. OXYCONTIN [Concomitant]
  4. PERCOCET [Concomitant]
  5. PHENYTEK (PHENYTOIN) [Concomitant]
  6. AMITRIPTYLINE HCL [Concomitant]
  7. FOSAMAX/VITAMIN D (ALENDRONATE SODIUM) [Concomitant]

REACTIONS (1)
  - LOSS OF CONSCIOUSNESS [None]
